FAERS Safety Report 4905382-X (Version None)
Quarter: 2006Q1

REPORT INFORMATION
  Report Type: 
  Country: None (occurrence: None)
  Receive Date: 20060208
  Receipt Date: 20040429
  Transmission Date: 20060701
  Serious: Yes (Other)
  Sender: FDA-Public Use
  Company Number: PHEH2004US04804

PATIENT
  Age: 57 Year
  Sex: Female
  Weight: 80.272 kg

DRUGS (1)
  1. ZOMETA [Suspect]
     Indication: NON-HODGKIN'S LYMPHOMA
     Dosage: 4 MG MONTHLY
     Route: 042
     Dates: start: 20021104, end: 20040324

REACTIONS (6)
  - DENTAL PROSTHESIS PLACEMENT [None]
  - ORAL SURGERY [None]
  - OSTEOMYELITIS [None]
  - PAIN IN JAW [None]
  - TOOTH DISORDER [None]
  - TOOTH EXTRACTION [None]
